FAERS Safety Report 4556793-6 (Version None)
Quarter: 2005Q1

REPORT INFORMATION
  Report Type: 
  Country: None (occurrence: None)
  Receive Date: 20050103
  Receipt Date: 20041012
  Transmission Date: 20050727
  Serious: Yes (Other)
  Sender: FDA-Public Use
  Company Number: 2004UW07388

PATIENT
  Age: 26 Year
  Sex: Female
  Weight: 119.7496 kg

DRUGS (5)
  1. CRESTOR [Suspect]
     Dosage: 10 MG DAILY PO
     Route: 048
     Dates: start: 20040101, end: 20040408
  2. PRENATAL VITAMINS [Concomitant]
  3. AMIPICILLIN [Concomitant]
  4. IRON [Concomitant]
  5. BACTRIM DS [Concomitant]

REACTIONS (3)
  - DRUG EXPOSURE DURING PREGNANCY [None]
  - NORMAL NEWBORN [None]
  - URINARY TRACT INFECTION [None]
